FAERS Safety Report 7166243-1 (Version None)
Quarter: 2010Q4

REPORT INFORMATION
  Report Type: 
  Country: None (occurrence: None)
  Receive Date: 20101201
  Receipt Date: 20101118
  Transmission Date: 20110411
  Serious: Yes (Hospitalization)
  Sender: FDA-Public Use
  Company Number: 018872

PATIENT
  Sex: Female

DRUGS (7)
  1. KEPPRA [Suspect]
     Indication: CONVULSION
     Dosage: (1000 MG BID ORAL)
     Route: 048
     Dates: start: 20100120, end: 20100910
  2. LACOSAMIDE [Suspect]
     Indication: CONVULSION
     Dosage: (200 MG BID ORAL)
     Route: 048
     Dates: start: 20100120, end: 20100910
  3. LISINOPRIL [Concomitant]
  4. HYDROCHLOROTHIAZIDE [Concomitant]
  5. LABETALOL [Concomitant]
  6. INSULIN [Concomitant]
  7. NICARDIPINE HYDROCHLORIDE [Concomitant]

REACTIONS (6)
  - CEREBROVASCULAR ACCIDENT [None]
  - DRUG DOSE OMISSION [None]
  - GRAND MAL CONVULSION [None]
  - HEADACHE [None]
  - LOSS OF CONSCIOUSNESS [None]
  - MALAISE [None]
